FAERS Safety Report 6267995-5 (Version None)
Quarter: 2009Q3

REPORT INFORMATION
  Report Type: 
  Country: None (occurrence: None)
  Receive Date: 20090713
  Receipt Date: 20090617
  Transmission Date: 20100115
  Serious: Yes (Hospitalization)
  Sender: FDA-Public Use
  Company Number: WAES 0905USA02603

PATIENT
  Age: 75 Year
  Sex: Female
  Weight: 55.7924 kg

DRUGS (10)
  1. DECADRON [Suspect]
     Dosage: 6 MG/DAILY/PO, 4 MG/DAILY/PO
     Route: 048
     Dates: start: 20090327, end: 20090501
  2. DECADRON [Suspect]
     Dosage: 6 MG/DAILY/PO, 4 MG/DAILY/PO
     Route: 048
     Dates: start: 20090501
  3. BLINDED THERAPY UNK [Suspect]
     Indication: PROPHYLAXIS
     Dates: start: 20090424
  4. [THERAPY UNSPECIFIED] UNK [Suspect]
     Dosage: UNK/5 DAYS ON/16 DAYS OFF/UNK
     Dates: start: 20090424, end: 20090518
  5. ADVAIR HFA [Concomitant]
  6. PROVENTIL-HFA [Concomitant]
  7. AMLODIPINE [Concomitant]
  8. FAMOTIDINE [Concomitant]
  9. LEVETIRACETAM [Concomitant]
  10. METOPROLOL SUCCINATE [Concomitant]

REACTIONS (12)
  - BLOOD ALBUMIN DECREASED [None]
  - BLOOD ALKALINE PHOSPHATASE INCREASED [None]
  - BLOOD PRESSURE DIASTOLIC DECREASED [None]
  - DIZZINESS [None]
  - DYSPNOEA [None]
  - FATIGUE [None]
  - HYPERGLYCAEMIA [None]
  - INTRACRANIAL HAEMATOMA [None]
  - MUCOSAL INFLAMMATION [None]
  - MUSCULAR WEAKNESS [None]
  - PNEUMONIA [None]
  - PROTEIN TOTAL DECREASED [None]
